FAERS Safety Report 20879093 (Version 1)
Quarter: 2022Q2

REPORT INFORMATION
  Report Type: Spontaneous
  Country: US (occurrence: US)
  Receive Date: 20220526
  Receipt Date: 20220526
  Transmission Date: 20220721
  Serious: Yes (Other)
  Sender: FDA-Public Use
  Company Number: US-AMGEN-USASP2022087423

PATIENT
  Age: 71 Year
  Sex: Male

DRUGS (4)
  1. PROLIA [Suspect]
     Active Substance: DENOSUMAB
     Indication: Hypercalcaemia
     Dosage: 60 MILLIGRAM
     Route: 065
  2. PREDNISONE [Concomitant]
     Active Substance: PREDNISONE
     Indication: Pericarditis
     Route: 065
  3. SODIUM CHLORIDE [Concomitant]
     Active Substance: SODIUM CHLORIDE
     Indication: Hypercalcaemia
     Route: 042
  4. CALCITONIN [Concomitant]
     Active Substance: CALCITONIN
     Indication: Hypercalcaemia
     Route: 065

REACTIONS (8)
  - Histoplasmosis [Recovered/Resolved]
  - Mental impairment [Unknown]
  - Off label use [Unknown]
  - Pleuritic pain [Unknown]
  - Blood parathyroid hormone decreased [Unknown]
  - Weight decreased [Unknown]
  - Night sweats [Unknown]
  - Drug ineffective for unapproved indication [Unknown]
